FAERS Safety Report 5351512-8 (Version None)
Quarter: 2007Q2

REPORT INFORMATION
  Report Type: 
  Country: None (occurrence: None)
  Receive Date: 20070608
  Receipt Date: 20070531
  Transmission Date: 20071010
  Serious: Yes (Other)
  Sender: FDA-Public Use
  Company Number: US-GENENTECH-242333

PATIENT
  Sex: Female

DRUGS (2)
  1. AVASTIN [Suspect]
     Indication: NON-SMALL CELL LUNG CANCER
     Dosage: UNK, UNKNOWN
     Route: 065
     Dates: end: 20070101
  2. ALIMTA [Concomitant]
     Indication: DRUG USE FOR UNKNOWN INDICATION
     Dosage: UNK, UNKNOWN
     Route: 065
     Dates: start: 20070307

REACTIONS (1)
  - RENAL FAILURE ACUTE [None]
